FAERS Safety Report 6695973-0 (Version None)
Quarter: 2010Q2

REPORT INFORMATION
  Report Type: 
  Country: None (occurrence: None)
  Receive Date: 20100423
  Receipt Date: 20100423
  Transmission Date: 20101027
  Serious: Yes (Life-Threatening, Hospitalization)
  Sender: FDA-Public Use
  Company Number: None

PATIENT
  Sex: Male
  Weight: 79.5 kg

DRUGS (2)
  1. ALBUTEROL [Suspect]
     Indication: ASTHMA
     Dosage: 90 MGS EVERY 5 - 6 HOURS INHALED
     Route: 055
     Dates: start: 20100305
  2. ALBUTEROL [Suspect]
     Indication: ASTHMA
     Dosage: 90 MGS EVERY 5 - 6 HOURS INHALED
     Route: 055
     Dates: start: 20100308

REACTIONS (3)
  - DYSPNOEA [None]
  - NAUSEA [None]
  - TREMOR [None]
